FAERS Safety Report 8961546 (Version 2)
Quarter: 2013Q1

REPORT INFORMATION
  Report Type: Spontaneous
  Country: US (occurrence: US)
  Receive Date: 20121213
  Receipt Date: 20130128
  Transmission Date: 20140127
  Serious: Yes (Hospitalization, Other)
  Sender: FDA-Public Use
  Company Number: US-BAYER-2012-129952

PATIENT
  Age: 36 Year
  Sex: Female
  Weight: 90.7 kg

DRUGS (8)
  1. YAZ [Suspect]
  2. YASMIN [Suspect]
  3. Z-PAK [Concomitant]
     Indication: BRONCHITIS
  4. PREDNISONE [Concomitant]
     Indication: BRONCHITIS
  5. ADVIL [Concomitant]
     Indication: PAIN IN EXTREMITY
     Dosage: 400 MG, UNK
     Route: 048
  6. TYELNOL [Concomitant]
     Indication: PAIN IN EXTREMITY
     Dosage: 600 MG, UNK
     Route: 048
  7. LISINOPRIL [Concomitant]
  8. OTHER ANALGESICS AND ANTIPYRETICS [Concomitant]
     Indication: PAIN IN EXTREMITY
     Dosage: 2 TABLES
     Route: 048

REACTIONS (3)
  - Pulmonary embolism [None]
  - Deep vein thrombosis [None]
  - Thrombosis [None]
